FAERS Safety Report 24132406 (Version 1)
Quarter: 2024Q3

REPORT INFORMATION
  Report Type: Spontaneous
  Country: KR (occurrence: KR)
  Receive Date: 20240724
  Receipt Date: 20240724
  Transmission Date: 20241017
  Serious: Yes (Other)
  Sender: MERCK
  Company Number: KR-009507513-2407KOR012030

PATIENT
  Sex: Female

DRUGS (2)
  1. KEYTRUDA [Suspect]
     Active Substance: PEMBROLIZUMAB
     Dosage: 200 MG, DOSE INTERVAL: 1 DAY; FORMULATION: VIAL
     Route: 042
     Dates: start: 20230613, end: 20230613
  2. CARBOPLATIN [Suspect]
     Active Substance: CARBOPLATIN
     Dosage: 372 MG, DOSAGE INTERVAL: 1 DAY, FORMULATION: VIAL
     Route: 042
     Dates: start: 20230613, end: 20230613

REACTIONS (1)
  - Leukopenia [Recovered/Resolved]

NARRATIVE: CASE EVENT DATE: 20230623
